FAERS Safety Report 5580751-6 (Version None)
Quarter: 2008Q1

REPORT INFORMATION
  Report Type: 
  Country: None (occurrence: None)
  Receive Date: 20080103
  Receipt Date: 20071231
  Transmission Date: 20080703
  Serious: Yes (Disabling)
  Sender: FDA-Public Use
  Company Number: GB-PFIZER INC-2008000232

PATIENT
  Age: 44 Year
  Sex: Female
  Weight: 58 kg

DRUGS (4)
  1. CHANTIX [Suspect]
     Indication: SMOKING CESSATION THERAPY
     Route: 048
     Dates: start: 20071004, end: 20071126
  2. CO-CODAMOL [Concomitant]
     Indication: TENOSYNOVITIS
     Dosage: TEXT:2 DOSES
     Route: 048
  3. DICLOFENAC SODIUM [Concomitant]
     Indication: TENOSYNOVITIS
     Route: 048
  4. SERETIDE [Concomitant]
     Indication: ASTHMA
     Dosage: TEXT:2 DOSES
     Route: 055

REACTIONS (7)
  - ABDOMINAL PAIN UPPER [None]
  - ABNORMAL FAECES [None]
  - DISTURBANCE IN ATTENTION [None]
  - FATIGUE [None]
  - HEADACHE [None]
  - INSOMNIA [None]
  - NAUSEA [None]
